FAERS Safety Report 14046702 (Version 2)
Quarter: 2017Q4

REPORT INFORMATION
  Report Type: Spontaneous
  Country: JP (occurrence: JP)
  Receive Date: 20171005
  Receipt Date: 20171201
  Transmission Date: 20180321
  Serious: Yes (Disabling)
  Sender: FDA-Public Use
  Company Number: JP-AMGEN-JPNSP2017148035

PATIENT
  Age: 67 Year
  Sex: Female
  Weight: 58 kg

DRUGS (16)
  1. RANMARK [Suspect]
     Active Substance: DENOSUMAB
     Dosage: UNK
     Route: 065
     Dates: start: 20150713, end: 20150713
  2. RANMARK [Suspect]
     Active Substance: DENOSUMAB
     Dosage: UNK
     Route: 065
     Dates: start: 20170612
  3. TEPRENONE [Concomitant]
     Active Substance: TEPRENONE
     Dosage: 50 MG, TID
     Route: 065
  4. SOLANAX [Concomitant]
     Active Substance: ALPRAZOLAM
     Dosage: 0.4 MG, BID
     Route: 065
  5. ALLELOCK [Concomitant]
     Active Substance: OLOPATADINE HYDROCHLORIDE
     Dosage: 5 MG, BID
     Route: 065
  6. GILOTRIF [Concomitant]
     Active Substance: AFATINIB
     Dosage: 30 MG, QD
     Route: 065
  7. LOXOPROFEN [Concomitant]
     Active Substance: LOXOPROFEN
     Dosage: 60 MG, BID
     Route: 065
  8. PEMETREXED. [Concomitant]
     Active Substance: PEMETREXED
     Dosage: UNK
     Route: 065
  9. RANMARK [Suspect]
     Active Substance: DENOSUMAB
     Indication: METASTASES TO BONE
     Dosage: 120 MG, Q4WK
     Route: 065
     Dates: start: 20140807, end: 20150625
  10. DENOTAS [Concomitant]
     Active Substance: CALCIUM CARBONATE\CHOLECALCIFEROL\MAGNESIUM CARBONATE
     Dosage: 2 DF, QD
     Route: 065
  11. LOPERAMIDE HYDROCHLORIDE. [Concomitant]
     Active Substance: LOPERAMIDE HYDROCHLORIDE
     Dosage: UNK
     Route: 065
  12. CARBOPLATIN. [Concomitant]
     Active Substance: CARBOPLATIN
     Dosage: UNK
     Route: 065
  13. BEVACIZUMAB. [Concomitant]
     Active Substance: BEVACIZUMAB
     Dosage: UNK
     Route: 065
  14. RANMARK [Suspect]
     Active Substance: DENOSUMAB
     Dosage: UNK
     Route: 065
     Dates: start: 20160515, end: 20170220
  15. RANMARK [Suspect]
     Active Substance: DENOSUMAB
     Dosage: UNK
     Route: 065
     Dates: start: 20150914, end: 20160220
  16. PACLITAXEL. [Concomitant]
     Active Substance: PACLITAXEL
     Dosage: UNK
     Route: 065

REACTIONS (1)
  - Osteomyelitis [Not Recovered/Not Resolved]

NARRATIVE: CASE EVENT DATE: 201704
